FAERS Safety Report 25082339 (Version 2)
Quarter: 2025Q1

REPORT INFORMATION
  Report Type: Spontaneous
  Country: CN (occurrence: CN)
  Receive Date: 20250317
  Receipt Date: 20250317
  Transmission Date: 20250408
  Serious: Yes (Other)
  Sender: JIANGSU HENGRUI
  Company Number: CN-JIANGSU HENGRUI PHARMACEUTICALS CO., LTD.-H2025205704

PATIENT
  Age: 55 Year
  Weight: 45 kg

DRUGS (2)
  1. OXALIPLATIN FOR INJECTION [Suspect]
     Active Substance: OXALIPLATIN
     Indication: Hepatic cancer
     Dosage: 150 MG, Q3W
  2. FLUOROURACIL [Suspect]
     Active Substance: FLUOROURACIL
     Indication: Hepatic cancer
     Dosage: 150 MG, Q3W

REACTIONS (2)
  - Myelosuppression [Not Recovered/Not Resolved]
  - Hydronephrosis [Not Recovered/Not Resolved]
